FAERS Safety Report 18814498 (Version 1)
Quarter: 2021Q1

REPORT INFORMATION
  Report Type: Spontaneous
  Country: US (occurrence: US)
  Receive Date: 20210131
  Receipt Date: 20210131
  Transmission Date: 20210419
  Serious: Yes (Hospitalization)
  Sender: FDA-Public Use
  Company Number: None

PATIENT
  Age: 76 Year
  Sex: Female
  Weight: 73 kg

DRUGS (1)
  1. BAMLANIVIMAB. [Suspect]
     Active Substance: BAMLANIVIMAB
     Indication: COVID-19
     Dosage: ?          OTHER FREQUENCY:ONCE;?
     Route: 041
     Dates: start: 20210122

REACTIONS (8)
  - Dyspnoea [None]
  - Diarrhoea [None]
  - Pyrexia [None]
  - Hypoxia [None]
  - Pain [None]
  - Cough [None]
  - Lung opacity [None]
  - Condition aggravated [None]

NARRATIVE: CASE EVENT DATE: 20210127
